FAERS Safety Report 5256134-5 (Version None)
Quarter: 2007Q1

REPORT INFORMATION
  Report Type: 
  Country: None (occurrence: None)
  Receive Date: 20070306
  Receipt Date: 20070228
  Transmission Date: 20070707
  Serious: Yes (Hospitalization, Other)
  Sender: FDA-Public Use
  Company Number: 2007UW01902

PATIENT
  Age: 50 Year
  Sex: Male
  Weight: 81.8 kg

DRUGS (4)
  1. SEROQUEL [Suspect]
     Indication: BIPOLAR DISORDER
     Dosage: INGESTED 80 / 300 MG TABLETS
     Route: 048
     Dates: start: 20070124, end: 20070124
  2. SEROQUEL [Suspect]
     Route: 048
     Dates: start: 20060101, end: 20070124
  3. LAMICTAL [Concomitant]
     Indication: BIPOLAR DISORDER
     Route: 048
  4. DEPAKOTE ER [Concomitant]
     Indication: BIPOLAR DISORDER

REACTIONS (3)
  - INTENTIONAL OVERDOSE [None]
  - RESPIRATORY DEPRESSION [None]
  - SUICIDE ATTEMPT [None]
